FAERS Safety Report 9815557 (Version 1)
Quarter: 2014Q1

REPORT INFORMATION
  Report Type: Spontaneous
  Country: CO (occurrence: CO)
  Receive Date: 20140114
  Receipt Date: 20140114
  Transmission Date: 20141002
  Serious: Yes (Other)
  Sender: FDA-Public Use
  Company Number: CO-TEVA-455998USA

PATIENT
  Sex: Female

DRUGS (1)
  1. BENDAMUSTINE [Suspect]
     Dosage: UNKNOWN/D
     Route: 042

REACTIONS (1)
  - Hepatotoxicity [Unknown]
